FAERS Safety Report 23736440 (Version 1)
Quarter: 2024Q2

REPORT INFORMATION
  Report Type: Other
  Country: PL (occurrence: PL)
  Receive Date: 20240412
  Receipt Date: 20240412
  Transmission Date: 20240716
  Serious: Yes (Life-Threatening, Hospitalization)
  Sender: FDA-Public Use
  Company Number: PL-B.Braun Medical Inc.-2155503

PATIENT
  Age: 16 Year
  Sex: Female

DRUGS (3)
  1. HEPARIN SODIUM IN DEXTROSE [Suspect]
     Active Substance: HEPARIN SODIUM
     Indication: Pulmonary embolism
     Route: 042
  2. Combined (etonogestrel and ethinylestradiol) oral contraceptives [Concomitant]
  3. Antipsychotic use [Concomitant]

REACTIONS (1)
  - Drug ineffective [Unknown]
